FAERS Safety Report 25144338 (Version 2)
Quarter: 2025Q2

REPORT INFORMATION
  Report Type: Spontaneous
  Country: CN (occurrence: CN)
  Receive Date: 20250401
  Receipt Date: 20250410
  Transmission Date: 20250716
  Serious: Yes (Death, Hospitalization)
  Sender: ROCHE
  Company Number: CN-BoehringerIngelheim-2025-BI-016766

PATIENT
  Age: 73 Year
  Sex: Male
  Weight: 74 kg

DRUGS (4)
  1. ALTEPLASE [Suspect]
     Active Substance: ALTEPLASE
     Indication: Cerebral infarction
     Route: 042
     Dates: start: 20250225, end: 20250225
  2. ALTEPLASE [Suspect]
     Active Substance: ALTEPLASE
     Dosage: MOST RECENT DOSE RECEIVED ON 25-FEB-2025
     Route: 042
     Dates: start: 20250225
  3. KALLIDINOGENASE [Suspect]
     Active Substance: KALLIDINOGENASE
     Indication: Cerebral infarction
     Route: 042
     Dates: start: 20250225, end: 20250225
  4. LIGUSTRAZINE HYDROCHLORIDE [Suspect]
     Active Substance: LIGUSTRAZINE HYDROCHLORIDE
     Indication: Cerebral infarction
     Route: 042
     Dates: start: 20250225, end: 20250225

REACTIONS (9)
  - Pneumonia [Fatal]
  - Respiratory failure [Fatal]
  - Cerebral haemorrhage [Not Recovered/Not Resolved]
  - Cerebral reperfusion injury [Not Recovered/Not Resolved]
  - Cerebral infarction [Not Recovered/Not Resolved]
  - Epilepsy [Not Recovered/Not Resolved]
  - Hyperthermia [Not Recovered/Not Resolved]
  - Urinary tract injury [Not Recovered/Not Resolved]
  - Acidosis [Not Recovered/Not Resolved]

NARRATIVE: CASE EVENT DATE: 20250225
